FAERS Safety Report 7780529-9 (Version None)
Quarter: 2011Q3

REPORT INFORMATION
  Report Type: 
  Country: None (occurrence: None)
  Receive Date: 20110927
  Receipt Date: 20110915
  Transmission Date: 20111222
  Serious: Yes (Other)
  Sender: FDA-Public Use
  Company Number: JP-SANOFI-AVENTIS-2011SA062379

PATIENT
  Age: 67 Year
  Sex: Female

DRUGS (4)
  1. OXALIPLATIN [Suspect]
     Route: 041
  2. FLUOROURACIL [Concomitant]
     Indication: COLON CANCER
     Route: 040
  3. LEUCOVORIN CALCIUM [Concomitant]
     Indication: COLON CANCER
     Route: 041
  4. FLUOROURACIL [Concomitant]
     Route: 041

REACTIONS (1)
  - TUMOUR LYSIS SYNDROME [None]
